FAERS Safety Report 13067381 (Version 2)
Quarter: 2017Q1

REPORT INFORMATION
  Report Type: Report from Study
  Country: GB (occurrence: GB)
  Receive Date: 20161228
  Receipt Date: 20170216
  Transmission Date: 20170428
  Serious: Yes (Hospitalization, Other)
  Sender: FDA-Public Use
  Company Number: GB-AMGEN-GBRSL2016182074

PATIENT
  Sex: Female

DRUGS (1)
  1. ARANESP [Suspect]
     Active Substance: DARBEPOETIN ALFA
     Indication: PRODUCT USED FOR UNKNOWN INDICATION
     Dosage: 100 MUG, UNK
     Route: 065

REACTIONS (3)
  - Oedema peripheral [Recovering/Resolving]
  - Fluid retention [Recovering/Resolving]
  - Renal failure [Unknown]
